FAERS Safety Report 4500990-2 (Version None)
Quarter: 2004Q4

REPORT INFORMATION
  Report Type: 
  Country: None (occurrence: None)
  Receive Date: 20041115
  Receipt Date: 20040924
  Transmission Date: 20050328
  Serious: Yes (Other)
  Sender: FDA-Public Use
  Company Number: IRMS: 20425172

PATIENT
  Age: 35 Year
  Sex: Female

DRUGS (4)
  1. LAMICTAL [Suspect]
     Indication: PETIT MAL EPILEPSY
     Route: 048
     Dates: start: 20031201
  2. MARVELON [Concomitant]
  3. NASONEX [Concomitant]
  4. ASTHMA MEDICATION [Concomitant]

REACTIONS (2)
  - HYPOGLYCAEMIA [None]
  - TREATMENT NONCOMPLIANCE [None]
